FAERS Safety Report 8767775 (Version 1)
Quarter: 2012Q4

REPORT INFORMATION
  Report Type: Report from Study
  Country: AU (occurrence: AU)
  Receive Date: 20120905
  Receipt Date: 20120905
  Transmission Date: 20130627
  Serious: Yes (Other)
  Sender: FDA-Public Use
  Company Number: AU-ROCHE-1051643

PATIENT
  Age: 49 Year
  Sex: Female

DRUGS (9)
  1. ROACTEMRA [Suspect]
     Indication: RHEUMATOID ARTHRITIS
     Route: 042
  2. ROACTEMRA [Suspect]
     Route: 065
     Dates: start: 20120217
  3. ROACTEMRA [Suspect]
     Route: 042
     Dates: start: 20120120
  4. ARAVA [Concomitant]
     Indication: RHEUMATOID ARTHRITIS
     Route: 048
  5. ARAVA [Concomitant]
     Route: 065
  6. SULPHASALAZINE [Concomitant]
     Indication: RHEUMATOID ARTHRITIS
     Dosage: 1 year back started
     Route: 048
  7. PREDNISOLONE [Concomitant]
     Indication: RHEUMATOID ARTHRITIS
     Dosage: 1 year back started
     Route: 048
  8. THYROXINE [Concomitant]
     Dosage: THYROID function, dose 170 meq
     Route: 048
  9. METHOTREXATE [Concomitant]
     Route: 065

REACTIONS (9)
  - Influenza like illness [Recovering/Resolving]
  - Lymphadenopathy [Recovering/Resolving]
  - Liver function test abnormal [Unknown]
  - Infection [Unknown]
  - White blood cell count decreased [Unknown]
  - Blood cholesterol increased [Unknown]
  - Oral herpes [Unknown]
  - Joint swelling [Unknown]
  - Respiratory tract infection [Unknown]
